FAERS Safety Report 4591850-X (Version None)
Quarter: 2005Q1

REPORT INFORMATION
  Report Type: 
  Country: None (occurrence: None)
  Receive Date: 20050222
  Receipt Date: 20050209
  Transmission Date: 20050727
  Serious: Yes (Other)
  Sender: FDA-Public Use
  Company Number: 2005027848

PATIENT
  Age: 80 Year
  Sex: Male
  Weight: 80.7403 kg

DRUGS (7)
  1. VIAGRA [Suspect]
     Indication: ILL-DEFINED DISORDER
     Dosage: AS NECESSARY, ORAL
     Route: 048
  2. LIPITOR [Suspect]
     Indication: BLOOD CHOLESTEROL INCREASED
  3. TADALAFIL (TADALAFIL) [Suspect]
     Indication: ILL-DEFINED DISORDER
     Dates: start: 20040101
  4. METOPROLOL TARTRATE [Concomitant]
  5. LABETALOL HCL [Concomitant]
  6. LOSARTAN POTASSIUM [Concomitant]
  7. TYLENOL PM (DIPHENHYDRAMINE, PARACETAMOL) [Concomitant]

REACTIONS (3)
  - ATRIAL FIBRILLATION [None]
  - BLOOD CHOLESTEROL INCREASED [None]
  - HEADACHE [None]
